FAERS Safety Report 9489496 (Version 1)
Quarter: 2013Q3

REPORT INFORMATION
  Report Type: Report from Study
  Country: GR (occurrence: GR)
  Receive Date: 20130829
  Receipt Date: 20130829
  Transmission Date: 20140515
  Serious: Yes (Life-Threatening, Hospitalization, Other)
  Sender: FDA-Public Use
  Company Number: GR-ELI_LILLY_AND_COMPANY-GR201308009234

PATIENT
  Age: 66 Year
  Sex: Male
  Weight: 75.01 kg

DRUGS (14)
  1. GEMCITABINE HYDROCHLORIDE [Suspect]
     Indication: PANCREATIC CARCINOMA METASTATIC
     Dosage: 1900 MG, 2/W
     Route: 042
     Dates: start: 20121101, end: 20121214
  2. TEMSIROLIMUS [Suspect]
     Indication: PANCREATIC CARCINOMA METASTATIC
     Dosage: 25 MG, WEEKLY (1/W)
     Route: 042
     Dates: start: 20121101, end: 20121221
  3. DEXATON                            /00016002/ [Concomitant]
     Dosage: 8 MG, UNK
     Route: 042
     Dates: start: 20121101, end: 20121221
  4. ALOXI [Concomitant]
     Indication: PROPHYLAXIS OF NAUSEA AND VOMITING
     Dosage: 5 ML, UNK
     Route: 042
     Dates: start: 20121101, end: 20121221
  5. FENISTIL [Concomitant]
     Dosage: 4 MG, UNK
     Route: 042
     Dates: start: 20121101, end: 20121221
  6. AVELOX [Concomitant]
     Dosage: 400 MG, QD
     Route: 048
     Dates: start: 20121227, end: 20130110
  7. ZANTAC [Concomitant]
     Indication: PROPHYLAXIS
     Dosage: 150 MG, QD
     Route: 048
     Dates: start: 20121101, end: 20121221
  8. ZOFRAN [Concomitant]
     Indication: PROPHYLAXIS OF NAUSEA AND VOMITING
     Dosage: 4 MG, QD
     Route: 048
     Dates: start: 20121101, end: 20121223
  9. PANADOL [Concomitant]
     Indication: PAIN
     Dosage: 500 MG, PRN
     Route: 048
     Dates: start: 20121201, end: 20121229
  10. XANAX [Concomitant]
     Indication: ANXIETY
     Dosage: 0.5 MG, BID
     Route: 048
     Dates: start: 20121214
  11. PREZOLON [Concomitant]
     Indication: PROPHYLAXIS
     Dosage: 5 MG, BID
     Route: 048
     Dates: start: 20121214
  12. APOTEL [Concomitant]
     Indication: PAIN
     Dosage: 500 MG, SINGLE
     Route: 048
     Dates: start: 20121207, end: 20121207
  13. SPORANOX [Concomitant]
     Indication: MUCOSAL INFLAMMATION
     Dosage: 100 MG, QD
     Route: 048
     Dates: start: 20121120, end: 20121120
  14. SODIUM CHLORIDE [Concomitant]
     Dosage: 100 ML, UNK
     Dates: start: 20121101, end: 20121221

REACTIONS (2)
  - Thrombosis [Not Recovered/Not Resolved]
  - Pulmonary embolism [Not Recovered/Not Resolved]
